FAERS Safety Report 11117227 (Version 1)
Quarter: 2015Q2

REPORT INFORMATION
  Report Type: Spontaneous
  Country: US (occurrence: US)
  Receive Date: 20150515
  Receipt Date: 20150515
  Transmission Date: 20150821
  Serious: Yes (Other)
  Sender: FDA-Public Use
  Company Number: US-BAUSCH-BL-2015-012664

PATIENT
  Age: 74 Year
  Sex: Male

DRUGS (1)
  1. ARESTIN [Suspect]
     Active Substance: MINOCYCLINE HYDROCHLORIDE
     Indication: GINGIVAL RECESSION
     Dosage: 1 CARTRIDGE USED.
     Route: 004
     Dates: start: 20150427, end: 20150429

REACTIONS (1)
  - Ototoxicity [Recovered/Resolved]

NARRATIVE: CASE EVENT DATE: 20150429
